FAERS Safety Report 5051198-6 (Version None)
Quarter: 2006Q3

REPORT INFORMATION
  Report Type: 
  Country: None (occurrence: None)
  Receive Date: 20060714
  Receipt Date: 20060705
  Transmission Date: 20061208
  Serious: Yes (Hospitalization)
  Sender: FDA-Public Use
  Company Number: US-JNJFOC-20060701583

PATIENT
  Sex: Female
  Weight: 96.16 kg

DRUGS (3)
  1. DURAGESIC-100 [Suspect]
     Indication: PAIN
     Route: 062
  2. PERCOCET [Concomitant]
     Indication: PAIN
     Dosage: 10 MG / 650 MG, ORAL
     Route: 048
  3. FLEXERIL [Concomitant]
     Indication: MUSCLE SPASMS
     Route: 048

REACTIONS (4)
  - CEREBRAL HAEMORRHAGE [None]
  - HEAD INJURY [None]
  - ROAD TRAFFIC ACCIDENT [None]
  - SKIN LACERATION [None]
